FAERS Safety Report 23569797 (Version 1)
Quarter: 2024Q1

REPORT INFORMATION
  Report Type: Spontaneous
  Country: US (occurrence: US)
  Receive Date: 20240227
  Receipt Date: 20240227
  Transmission Date: 20240410
  Serious: Yes (Hospitalization, Other)
  Sender: FDA-Public Use
  Company Number: US-MLMSERVICE-20240212-4827159-1

PATIENT
  Age: 75 Year
  Sex: Male

DRUGS (6)
  1. TACROLIMUS [Suspect]
     Active Substance: TACROLIMUS
     Indication: Immunosuppressant drug therapy
     Dosage: IN EVENING (1.5 MG IN MORNING AND 2MG IN EVENING)
  2. MYCOPHENOLATE MOFETIL [Concomitant]
     Active Substance: MYCOPHENOLATE MOFETIL
     Indication: Immunosuppressant drug therapy
     Dates: start: 2002
  3. PREDNISONE [Concomitant]
     Active Substance: PREDNISONE
     Indication: Immunosuppressant drug therapy
     Dates: start: 2002
  4. TACROLIMUS [Suspect]
     Active Substance: TACROLIMUS
     Indication: Immunosuppressant drug therapy
     Dosage: IN MORNING (1.5 MG IN MORNING AND 2MG IN EVENING)
  5. TACROLIMUS [Suspect]
     Active Substance: TACROLIMUS
     Indication: Immunosuppressant drug therapy
     Dosage: 0.5 MG TWICE DAILY
  6. TACROLIMUS [Suspect]
     Active Substance: TACROLIMUS
     Indication: Immunosuppressant drug therapy

REACTIONS (7)
  - Cardiac tamponade [Recovering/Resolving]
  - Incorrect dose administered [Recovering/Resolving]
  - Ascites [Recovering/Resolving]
  - Blood creatinine increased [Recovering/Resolving]
  - Generalised oedema [Recovering/Resolving]
  - Pulmonary hypertension [Recovering/Resolving]
  - Pericardial effusion [Recovering/Resolving]
